FAERS Safety Report 6805926 (Version 4)
Quarter: 2012Q4

REPORT INFORMATION
  Report Type: Report from Study
  Country: DE (occurrence: JP)
  Receive Date: 20081107
  Receipt Date: 20121217
  Transmission Date: 20130627
  Serious: Yes (Hospitalization)
  Sender: FDA-Public Use
  Company Number: JP-BRISTOL-MYERS SQUIBB COMPANY-14395768

PATIENT
  Age: 40 Year
  Sex: Female

DRUGS (18)
  1. ERBITUX SOLN FOR INF 5MG/ML [Suspect]
     Indication: COLON CANCER
     Dosage: First infusion: 10-Oct-2008 (250mg/m2 weekly)
Second infusion: 22-Oct-2008
     Route: 041
     Dates: start: 20081010, end: 20081022
  2. AMOXAN [Concomitant]
     Indication: PAIN MANAGEMENT
     Dosage: Formulation - Capsule
     Route: 048
     Dates: start: 20081006, end: 20081027
  3. ADONA [Concomitant]
     Indication: HAEMOSTASIS
     Dosage: Formulation: Tablet
     Route: 048
     Dates: start: 20081020, end: 20081027
  4. TRANSAMIN [Concomitant]
     Indication: HAEMOSTASIS
     Dosage: Formulation - capsule
     Route: 048
     Dates: start: 20081020, end: 20081027
  5. BLOOD HUMAN [Concomitant]
     Dosage: 4 Dosage form=4 units (2 units on 20Oct and 2 units on 21Oct08)
     Route: 042
     Dates: start: 20081020, end: 20081021
  6. CHLORPHENAMINE MALEATE [Concomitant]
     Indication: PREMEDICATION
     Route: 041
     Dates: start: 20081010, end: 20081022
  7. MYSLEE [Concomitant]
     Indication: INSOMNIA
     Dosage: Formulation: Tablet
     Route: 048
     Dates: start: 20081021, end: 20081027
  8. MYSLEE [Concomitant]
     Indication: PROPHYLAXIS
     Dosage: Formulation: Tablet
     Route: 048
     Dates: start: 20081021, end: 20081027
  9. ACTOS [Concomitant]
     Indication: DIABETES MELLITUS
     Dosage: Formulation: Tablet
     Route: 048
     Dates: start: 20081016, end: 20081026
  10. ALDACTONE-A [Concomitant]
     Indication: OEDEMA
     Dosage: Formulation: Tablet
     Route: 048
     Dates: start: 20081014, end: 20081027
  11. GASTER [Concomitant]
     Indication: PROPHYLAXIS
     Dosage: Formulation: Tablet
     Route: 048
     Dates: start: 20081014, end: 20081027
  12. GLUFAST [Concomitant]
     Indication: DIABETES MELLITUS
     Dosage: Formulation: Tablet
     Route: 048
     Dates: start: 20081014, end: 20081027
  13. NAIXAN [Concomitant]
     Indication: TUMOUR ASSOCIATED FEVER
     Dosage: Formulation: Tablet
     Route: 048
     Dates: start: 20081014, end: 20081030
  14. NOVAMIN [Concomitant]
     Dosage: Formulation: Tablet
     Route: 048
     Dates: start: 20081020, end: 20081027
  15. HYPEN [Concomitant]
     Indication: ANALGESIC THERAPY
     Dosage: Formulation: Tablet
     Route: 048
     Dates: start: 20081014, end: 20081017
  16. POLARAMIN [Concomitant]
     Dosage: Formulation: Tablet
     Route: 048
     Dates: start: 20081020, end: 20081027
  17. LASIX [Concomitant]
     Route: 048
     Dates: start: 20081014, end: 20081027
  18. MAGNESIUM OXIDE [Concomitant]
     Route: 048
     Dates: start: 20081014

REACTIONS (2)
  - Hyperbilirubinaemia [Recovering/Resolving]
  - Pyrexia [Recovered/Resolved]
